FAERS Safety Report 9314866 (Version 2)
Quarter: 2013Q2

REPORT INFORMATION
  Report Type: Spontaneous
  Country: ES (occurrence: ES)
  Receive Date: 20130529
  Receipt Date: 20130604
  Transmission Date: 20140414
  Serious: Yes (Death, Other)
  Sender: FDA-Public Use
  Company Number: ES-009507513-1305ESP015014

PATIENT
  Age: 49 Year
  Sex: Female

DRUGS (2)
  1. ZOCOR [Suspect]
     Indication: HYPERCHOLESTEROLAEMIA
     Dosage: 120 MG, UNK
     Route: 048
  2. COLCHICINE [Interacting]
     Dosage: 20 MG, UNK

REACTIONS (5)
  - Cardiac arrest [Fatal]
  - Diarrhoea [Unknown]
  - Toxicity to various agents [Unknown]
  - Drug interaction [Unknown]
  - Overdose [Unknown]
